FAERS Safety Report 11894277 (Version 1)
Quarter: 2016Q1

REPORT INFORMATION
  Report Type: Spontaneous
  Country: US (occurrence: None)
  Receive Date: 20160106
  Receipt Date: 20160106
  Transmission Date: 20160526
  Serious: Yes (Disabling)
  Sender: FDA-Public Use
  Company Number: None

PATIENT
  Age: 27 Year
  Sex: Male

DRUGS (1)
  1. OLD SPICE PURE SPORT [Suspect]
     Active Substance: ALUMINUM ZIRCONIUM TRICHLOROHYDREX GLY
     Dosage: 1 APPLICATION 1-2 TIMES DAILY
     Route: 061
     Dates: end: 20151201

REACTIONS (14)
  - Pyrexia [None]
  - Musculoskeletal disorder [None]
  - Vomiting [None]
  - Tremor [None]
  - Blister [None]
  - Rash pruritic [None]
  - Skin burning sensation [None]
  - Nausea [None]
  - Abdominal discomfort [None]
  - Purulent discharge [None]
  - Sepsis [None]
  - Erythema [None]
  - White blood cell count increased [None]
  - Skin abrasion [None]

NARRATIVE: CASE EVENT DATE: 20151207
